FAERS Safety Report 25211014 (Version 2)
Quarter: 2025Q2

REPORT INFORMATION
  Report Type: Spontaneous
  Country: CA (occurrence: CA)
  Receive Date: 20250417
  Receipt Date: 20250523
  Transmission Date: 20250717
  Serious: No
  Sender: PFIZER
  Company Number: CA-PFIZER INC-202500079957

PATIENT
  Age: 68 Year
  Sex: Male

DRUGS (5)
  1. SOMAVERT [Suspect]
     Active Substance: PEGVISOMANT
     Indication: Acromegaly
     Dosage: 30 MG 1X/DAY
     Route: 058
     Dates: start: 20070101
  2. SOMAVERT [Suspect]
     Active Substance: PEGVISOMANT
     Dosage: 40 MG, 1X/DAY
     Route: 058
  3. CORTEF [Concomitant]
     Active Substance: HYDROCORTISONE
     Dosage: 10 MG, 2X/WEEK ON WEDNESDAYS AND SATURDAYS
     Route: 048
  4. ANDROGEL [Concomitant]
     Active Substance: TESTOSTERONE
     Dosage: 50 MG, DAILY (TWO 25MG PACKETS FOR A TOTAL OF 50MG)
  5. CALCIUM [Concomitant]
     Active Substance: CALCIUM
     Dosage: 500 MG, 2X/DAY
     Route: 048

REACTIONS (1)
  - Off label use [Unknown]
